FAERS Safety Report 26103232 (Version 1)
Quarter: 2025Q4

REPORT INFORMATION
  Report Type: Spontaneous
  Country: US (occurrence: US)
  Receive Date: 20251129
  Receipt Date: 20251129
  Transmission Date: 20260118
  Serious: No
  Sender: IBSA INSTITUT BIOCHIMIQUE
  Company Number: US-IBSA PHARMA INC.-2025IBS000244

PATIENT

DRUGS (6)
  1. LEVOTHYROXINE SODIUM [Suspect]
     Active Substance: LEVOTHYROXINE SODIUM
     Indication: Autoimmune thyroiditis
     Dosage: 100 MICROGRAM, QD
     Dates: start: 202407, end: 202504
  2. LISINOPRIL [Concomitant]
     Active Substance: LISINOPRIL
     Indication: Product used for unknown indication
  3. DEXAMETHASONE [Concomitant]
     Active Substance: DEXAMETHASONE
     Indication: Product used for unknown indication
  4. RABEPRAZOLE [Concomitant]
     Active Substance: RABEPRAZOLE
     Indication: Product used for unknown indication
  5. FAMOTIDINE [Concomitant]
     Active Substance: FAMOTIDINE
     Indication: Thyroid hormone replacement therapy
     Dosage: 100 MICROGRAM, QD
     Dates: start: 202407, end: 202504
  6. FAMOTIDINE [Concomitant]
     Active Substance: FAMOTIDINE
     Indication: Autoimmune thyroiditis

REACTIONS (4)
  - Brain fog [Unknown]
  - Weight increased [Unknown]
  - Rash [Unknown]
  - Fatigue [Unknown]
